FAERS Safety Report 16064395 (Version 1)
Quarter: 2019Q1

REPORT INFORMATION
  Report Type: Spontaneous
  Country: DE (occurrence: DE)
  Receive Date: 20190312
  Receipt Date: 20190312
  Transmission Date: 20190418
  Serious: Yes (Disabling, Congenital Anomaly, Other)
  Sender: FDA-Public Use
  Company Number: DE-MYLANLABS-2019M1022460

PATIENT

DRUGS (5)
  1. ZOLPIDEM [Suspect]
     Active Substance: ZOLPIDEM\ZOLPIDEM TARTRATE
     Indication: DEPRESSION
     Dosage: ANWENDUNG AN 2 TAGEN IM O. G. ZEITRAUM
     Route: 064
     Dates: start: 20180412, end: 20180607
  2. ATOSIL                             /00033002/ [Suspect]
     Active Substance: PROMETHAZINE HYDROCHLORIDE
     Indication: RESTLESSNESS
     Dosage: BIS 30 TROPFEN
     Route: 064
     Dates: start: 20180412, end: 20180607
  3. ZOLPIDEM [Suspect]
     Active Substance: ZOLPIDEM\ZOLPIDEM TARTRATE
     Indication: RESTLESSNESS
  4. ATOSIL                             /00033002/ [Suspect]
     Active Substance: PROMETHAZINE HYDROCHLORIDE
     Indication: DEPRESSION
  5. MARIJUANA [Concomitant]
     Active Substance: CANNABIS SATIVA SUBSP. INDICA TOP
     Dosage: PRAEKONZEPTIONELL 3-5X WOECHENTLICH
     Dates: end: 20180411

REACTIONS (2)
  - Foetal exposure during pregnancy [Recovered/Resolved]
  - Gastroschisis [Not Recovered/Not Resolved]

NARRATIVE: CASE EVENT DATE: 2018
